FAERS Safety Report 13679868 (Version 3)
Quarter: 2019Q4

REPORT INFORMATION
  Report Type: Spontaneous
  Country: US (occurrence: US)
  Receive Date: 20170622
  Receipt Date: 20191015
  Transmission Date: 20200122
  Serious: Yes (Other)
  Sender: FDA-Public Use
  Company Number: US-BAYER-2017-116377

PATIENT
  Age: 51 Year
  Sex: Female

DRUGS (11)
  1. MELOXICAM. [Concomitant]
     Active Substance: MELOXICAM
     Dosage: 15 MG, UNK
     Route: 048
  2. HYDROCODONE/ACETAMINOPHEN [Concomitant]
     Active Substance: ACETAMINOPHEN\HYDROCODONE
     Dosage: 10-500MG
     Route: 048
  3. ALPRAZOLAM. [Concomitant]
     Active Substance: ALPRAZOLAM
     Dosage: 2 MG, UNK
  4. IBUPROFEN. [Concomitant]
     Active Substance: IBUPROFEN
     Dosage: 800 MG, UNK
  5. GADAVIST [Suspect]
     Active Substance: GADOBUTROL
     Indication: PAIN IN EXTREMITY
     Dosage: 10 ML, ONCE
     Route: 042
     Dates: start: 20130401, end: 20130401
  6. GADAVIST [Suspect]
     Active Substance: GADOBUTROL
     Indication: BACK PAIN
     Dosage: 7.5 ML, ONCE
     Dates: start: 20140822, end: 20140822
  7. GADAVIST [Suspect]
     Active Substance: GADOBUTROL
     Indication: MAGNETIC RESONANCE IMAGING SPINAL
     Dosage: 8 ML, ONCE
     Route: 042
     Dates: start: 20131102, end: 20131102
  8. GADAVIST [Suspect]
     Active Substance: GADOBUTROL
     Indication: MAGNETIC RESONANCE IMAGING
  9. GADAVIST [Suspect]
     Active Substance: GADOBUTROL
     Indication: MAGNETIC RESONANCE IMAGING SPINAL
     Dosage: UNK, ONCE
     Dates: start: 201210, end: 201210
  10. PREGABALIN. [Concomitant]
     Active Substance: PREGABALIN
     Dosage: 50 MG, TID
     Route: 048
  11. GADAVIST [Suspect]
     Active Substance: GADOBUTROL
     Indication: MAGNETIC RESONANCE IMAGING BRAIN

REACTIONS (3)
  - Contrast media reaction [None]
  - Crying [None]
  - Suicidal ideation [None]
